FAERS Safety Report 8893378 (Version 1)
Quarter: 2012Q4

REPORT INFORMATION
  Report Type: 
  Country: FR (occurrence: FR)
  Receive Date: 20121108
  Receipt Date: 20121108
  Transmission Date: 20130627
  Serious: Yes (Hospitalization)
  Sender: FDA-Public Use
  Company Number: FR-009507513-1211FRA002963

PATIENT
  Age: 41 Year
  Sex: Female

DRUGS (4)
  1. NOROXINE [Suspect]
     Indication: URINARY TRACT INFECTION
     Dosage: 1 DF, bid
     Route: 048
     Dates: start: 20121004, end: 20121006
  2. KEPPRA [Concomitant]
     Indication: EPILEPSY
     Dosage: 3 DF, bid
     Route: 048
  3. ALEPSAL (BELLADONNA (+) CAFFEINE (+) PHENOBARBITAL) [Concomitant]
     Indication: EPILEPSY
     Dosage: 1 DF, qd
     Route: 048
  4. URBANYL [Concomitant]
     Dosage: 1 DF, tid
     Route: 048
     Dates: start: 20121004

REACTIONS (2)
  - Complex partial seizures [Recovered/Resolved]
  - Hypotonia [Recovered/Resolved]
